FAERS Safety Report 7765719-3 (Version None)
Quarter: 2011Q3

REPORT INFORMATION
  Report Type: 
  Country: None (occurrence: None)
  Receive Date: 20110921
  Receipt Date: 20110909
  Transmission Date: 20111222
  Serious: Yes (Hospitalization)
  Sender: FDA-Public Use
  Company Number: PHHO2011JP15504

PATIENT
  Sex: Male

DRUGS (10)
  1. ALISKIREN [Suspect]
     Dosage: 300 MG, QD
     Route: 048
     Dates: start: 20090130
  2. ALISKIREN [Suspect]
     Dosage: 300 MG, QD
     Route: 048
     Dates: start: 20081121, end: 20090129
  3. MICARDIS [Suspect]
     Dosage: 40 MG, UNK
     Route: 048
     Dates: start: 20060804
  4. MAGMITT [Suspect]
     Dosage: 990 MG, UNK
     Route: 048
     Dates: start: 20110722
  5. ALISKIREN [Suspect]
     Indication: CARDIOVASCULAR DISORDER
     Dosage: 300 MG, QD
     Route: 048
     Dates: start: 20080808, end: 20080904
  6. WARFARIN SODIUM [Suspect]
     Indication: LACUNAR INFARCTION
     Dosage: 1 MG, UNK
     Route: 048
     Dates: start: 20040130
  7. MIGLITOL [Suspect]
     Indication: TYPE 2 DIABETES MELLITUS
     Dosage: UNK
     Dates: start: 20081219
  8. LIPITOR [Suspect]
     Dosage: 10 MG, UNK
     Route: 048
     Dates: start: 20050121
  9. ALISKIREN [Suspect]
     Dosage: 300 MG, QD
     Route: 048
     Dates: start: 20080905, end: 20081111
  10. EQUA [Suspect]
     Indication: TYPE 2 DIABETES MELLITUS
     Dosage: 50 MG, DAILY
     Route: 048
     Dates: start: 20101210

REACTIONS (1)
  - PROSTATE CANCER [None]
